FAERS Safety Report 5374729-5 (Version None)
Quarter: 2007Q2

REPORT INFORMATION
  Report Type: 
  Country: None (occurrence: None)
  Receive Date: 20070629
  Receipt Date: 20070618
  Transmission Date: 20071010
  Serious: Yes (Hospitalization, Other)
  Sender: FDA-Public Use
  Company Number: HQWYE695419JUN07

PATIENT
  Sex: Female

DRUGS (5)
  1. EFFEXOR XR [Suspect]
     Indication: DEPRESSION
     Route: 048
     Dates: start: 20070502, end: 20070508
  2. EFFEXOR XR [Suspect]
     Route: 048
     Dates: start: 20070509, end: 20070605
  3. CRESTOR [Concomitant]
     Route: 048
     Dates: start: 20070401
  4. PROPRANOLOL HYDROCHLORIDE [Suspect]
     Dosage: OVERDOSE AMOUNT UNKNOWN
     Route: 048
  5. LOPRIL [Concomitant]
     Dosage: 10/20 MG DAILY
     Route: 048
     Dates: start: 20040101

REACTIONS (7)
  - BLOOD PRESSURE DECREASED [None]
  - DRUG WITHDRAWAL SYNDROME [None]
  - FEELING ABNORMAL [None]
  - HALLUCINATION [None]
  - INTENTIONAL OVERDOSE [None]
  - SUICIDAL IDEATION [None]
  - SUICIDE ATTEMPT [None]
